FAERS Safety Report 8621755-6 (Version None)
Quarter: 2012Q3

REPORT INFORMATION
  Report Type: 
  Country: None (occurrence: None)
  Receive Date: 20120821
  Receipt Date: 20120821
  Transmission Date: 20120928
  Serious: Yes (Other)
  Sender: FDA-Public Use
  Company Number: None

PATIENT
  Sex: Female

DRUGS (1)
  1. AMPHETAMINE SULFATE [Suspect]
     Indication: ATTENTION DEFICIT/HYPERACTIVITY DISORDER
     Dosage: 1 TAB ONCE DAILY ORAL
     Route: 048

REACTIONS (4)
  - DRUG INEFFECTIVE [None]
  - NERVOUSNESS [None]
  - MOOD ALTERED [None]
  - PRODUCT SUBSTITUTION ISSUE [None]
